FAERS Safety Report 24665888 (Version 2)
Quarter: 2024Q4

REPORT INFORMATION
  Report Type: Spontaneous
  Country: US (occurrence: US)
  Receive Date: 20241126
  Receipt Date: 20241127
  Transmission Date: 20250115
  Serious: Yes (Other)
  Sender: LUNDBECK
  Company Number: US-LUNDBECK-DKLU4006817

PATIENT

DRUGS (2)
  1. VYEPTI [Suspect]
     Active Substance: EPTINEZUMAB-JJMR
     Indication: Migraine prophylaxis
     Dosage: 100 MILLIGRAM
     Route: 041
     Dates: start: 20241105
  2. VYEPTI [Suspect]
     Active Substance: EPTINEZUMAB-JJMR
     Indication: Migraine

REACTIONS (4)
  - Pneumonia [Unknown]
  - Sinusitis [Unknown]
  - Pruritus [Not Recovered/Not Resolved]
  - Therapeutic response delayed [Not Recovered/Not Resolved]

NARRATIVE: CASE EVENT DATE: 20241101
